FAERS Safety Report 24643366 (Version 1)
Quarter: 2024Q4

REPORT INFORMATION
  Report Type: Spontaneous
  Country: US (occurrence: US)
  Receive Date: 20241120
  Receipt Date: 20241120
  Transmission Date: 20250115
  Serious: No
  Sender: SANOFI AVENTIS
  Company Number: US-SANOFI-02301379

PATIENT
  Sex: Female

DRUGS (2)
  1. LANTUS SOLOSTAR [Suspect]
     Active Substance: INSULIN GLARGINE
     Dosage: 20 U , BID
     Route: 065
  2. SEMGLEE [INSULIN GLARGINE] [Concomitant]
     Dosage: 20 U, BID

REACTIONS (1)
  - Off label use [Unknown]
